FAERS Safety Report 16046956 (Version 1)
Quarter: 2019Q1

REPORT INFORMATION
  Report Type: Spontaneous
  Country: US (occurrence: US)
  Receive Date: 20190307
  Receipt Date: 20190307
  Transmission Date: 20190418
  Serious: No
  Sender: FDA-Public Use
  Company Number: US-PFIZER INC-2019100795

PATIENT
  Age: 36 Year
  Sex: Female

DRUGS (1)
  1. GENOTROPIN MQ [Suspect]
     Active Substance: SOMATROPIN
     Indication: CUSHING^S SYNDROME
     Dosage: 0.2 MG, DAILY (AT NIGHT)

REACTIONS (9)
  - Hirsutism [Not Recovered/Not Resolved]
  - Energy increased [Unknown]
  - Muscle spasms [Unknown]
  - Anxiety [Unknown]
  - Insomnia [Unknown]
  - Sleep disorder [Unknown]
  - Acne [Recovering/Resolving]
  - Product use in unapproved indication [Unknown]
  - Cortisol decreased [Unknown]
